FAERS Safety Report 5533868-6 (Version None)
Quarter: 2007Q4

REPORT INFORMATION
  Report Type: 
  Country: None (occurrence: None)
  Receive Date: 20071129
  Receipt Date: 20071122
  Transmission Date: 20080405
  Serious: No
  Sender: FDA-Public Use
  Company Number: TUK2007A00063

PATIENT
  Age: 54 Year
  Sex: Female

DRUGS (4)
  1. ACTOS [Suspect]
     Indication: TYPE 2 DIABETES MELLITUS
     Dosage: 30 MG, ORAL
     Route: 048
     Dates: start: 20070614
  2. GLIMEPERIDE (GLIMEPIRIDE) [Concomitant]
  3. METFORMIN HCL [Concomitant]
  4. LEVOTHYROXINE SODIUM [Concomitant]

REACTIONS (3)
  - MALAISE [None]
  - VISUAL DISTURBANCE [None]
  - VISUAL FIELD DEFECT [None]
